FAERS Safety Report 14032809 (Version 2)
Quarter: 2017Q4

REPORT INFORMATION
  Report Type: Report from Study
  Country: US (occurrence: US)
  Receive Date: 20171002
  Receipt Date: 20171025
  Transmission Date: 20180321
  Serious: Yes (Other)
  Sender: FDA-Public Use
  Company Number: US-VIFOR (INTERNATIONAL) INC.-VIT-2017-09879

PATIENT
  Sex: Female

DRUGS (1)
  1. VELTASSA [Suspect]
     Active Substance: PATIROMER
     Indication: PRODUCT USED FOR UNKNOWN INDICATION
     Dates: start: 20170918, end: 20170920

REACTIONS (4)
  - Drug intolerance [Unknown]
  - Vomiting [Unknown]
  - Drug administration error [Unknown]
  - Renal failure [Unknown]

NARRATIVE: CASE EVENT DATE: 2017
